FAERS Safety Report 4874223-1 (Version None)
Quarter: 2006Q1

REPORT INFORMATION
  Report Type: 
  Country: None (occurrence: None)
  Receive Date: 20060104
  Receipt Date: 20060104
  Transmission Date: 20060701
  Serious: Yes (Life-Threatening, Hospitalization)
  Sender: FDA-Public Use
  Company Number: None

PATIENT
  Age: 44 Year
  Sex: Male

DRUGS (3)
  1. XANAX [Suspect]
     Dosage: 50 MG X 1
     Dates: start: 20050621
  2. COCAINE [Suspect]
  3. ALCOHOL [Concomitant]

REACTIONS (6)
  - ALCOHOL USE [None]
  - DYSARTHRIA [None]
  - LETHARGY [None]
  - MULTIPLE DRUG OVERDOSE INTENTIONAL [None]
  - RESPIRATORY FAILURE [None]
  - SUICIDAL IDEATION [None]
